FAERS Safety Report 7373443-4 (Version None)
Quarter: 2011Q1

REPORT INFORMATION
  Report Type: 
  Country: None (occurrence: None)
  Receive Date: 20110325
  Receipt Date: 20110316
  Transmission Date: 20110831
  Serious: Yes (Other)
  Sender: FDA-Public Use
  Company Number: GB-BIOGENIDEC-2010BI034957

PATIENT
  Age: 38 Year
  Sex: Female

DRUGS (5)
  1. SANDOCAL [Concomitant]
  2. AVONEX [Suspect]
     Indication: MULTIPLE SCLEROSIS
     Dates: start: 20091101
  3. LEVOTHYROXINE SODIUM [Concomitant]
  4. DICLOFENAC [Concomitant]
  5. PARACETAMOL [Concomitant]

REACTIONS (1)
  - THYROID CANCER [None]
